FAERS Safety Report 6188312-5 (Version None)
Quarter: 2009Q2

REPORT INFORMATION
  Report Type: 
  Country: None (occurrence: None)
  Receive Date: 20090513
  Receipt Date: 20090501
  Transmission Date: 20091009
  Serious: Yes (Hospitalization)
  Sender: FDA-Public Use
  Company Number: CA-PFIZER INC-2009165263

PATIENT
  Age: 67 Year

DRUGS (15)
  1. EXEMESTANE [Suspect]
     Indication: BREAST CANCER
     Dosage: 25 MG, 1X/DAY
     Route: 048
     Dates: start: 20080805, end: 20090113
  2. PACLITAXEL [Suspect]
     Dosage: UNK
     Route: 042
     Dates: start: 20090116, end: 20090123
  3. LOSARTAN POTASSIUM [Concomitant]
     Dosage: UNK
     Route: 048
     Dates: start: 20080705
  4. OXYCODONE [Concomitant]
     Dosage: UNK
     Route: 048
     Dates: start: 20080714
  5. DOMPERIDONE [Concomitant]
     Dosage: UNK
     Route: 048
     Dates: start: 20080705
  6. ACETAMINOPHEN [Concomitant]
     Dosage: UNK
     Route: 048
     Dates: start: 20000101
  7. HALOPERIDOL [Concomitant]
     Dosage: UNK
     Route: 048
     Dates: start: 20080715
  8. DOCUSATE SODIUM [Concomitant]
     Dosage: UNK
     Route: 048
     Dates: start: 20080705
  9. SENOKOT [Concomitant]
     Dosage: UNK
     Route: 048
     Dates: start: 20080705
  10. LACTULOSE [Concomitant]
     Dosage: UNK
     Route: 048
     Dates: start: 20080710
  11. POTASSIUM [Concomitant]
     Dosage: UNK
     Route: 048
     Dates: start: 20090106
  12. DEXAMETHASONE [Concomitant]
     Dosage: UNK
     Route: 058
     Dates: start: 20090113
  13. ONDANSETRON [Concomitant]
     Dosage: UNK
     Route: 058
     Dates: start: 20090124, end: 20090126
  14. MAXERAN [Concomitant]
     Dosage: UNK
     Route: 058
  15. FLUCONAZOLE [Concomitant]
     Dosage: UNK
     Route: 048

REACTIONS (1)
  - FEBRILE NEUTROPENIA [None]
